FAERS Safety Report 24985121 (Version 1)
Quarter: 2025Q1

REPORT INFORMATION
  Report Type: Spontaneous
  Country: US (occurrence: US)
  Receive Date: 20250219
  Receipt Date: 20250219
  Transmission Date: 20250409
  Serious: Yes (Hospitalization, Other)
  Sender: TEVA
  Company Number: US-TEVA-VS-3297567

PATIENT

DRUGS (2)
  1. AUSTEDO [Suspect]
     Active Substance: DEUTETRABENAZINE
     Indication: Product used for unknown indication
     Route: 065
  2. ESCITALOPRAM [Interacting]
     Active Substance: ESCITALOPRAM OXALATE
     Indication: Product used for unknown indication
     Route: 065

REACTIONS (10)
  - Hospitalisation [Unknown]
  - Hypertension [Unknown]
  - Tremor [Unknown]
  - Nausea [Unknown]
  - Drug interaction [Unknown]
  - Drug ineffective [Unknown]
  - Insomnia [Unknown]
  - Palpitations [Unknown]
  - Headache [Unknown]
  - Hyperhidrosis [Unknown]
